FAERS Safety Report 7920727-4 (Version None)
Quarter: 2011Q4

REPORT INFORMATION
  Report Type: 
  Country: None (occurrence: None)
  Receive Date: 20111117
  Receipt Date: 20111109
  Transmission Date: 20120403
  Serious: Yes (Other)
  Sender: FDA-Public Use
  Company Number: CA-AMGEN-CANSP2010009981

PATIENT
  Age: 59 Year
  Sex: Female
  Weight: 74.83 kg

DRUGS (9)
  1. ASPIRIN [Concomitant]
     Dosage: 81 MG, UNK
  2. METFORMIN HCL [Concomitant]
     Dosage: UNK
  3. FOLIC ACID [Concomitant]
     Dosage: UNK
  4. CLOBETASOL [Concomitant]
     Dosage: UNK
     Route: 061
  5. VITAMIN B-12 [Concomitant]
     Dosage: UNK
  6. METHOTREXATE [Concomitant]
     Dosage: UNK
  7. LIPITOR [Concomitant]
     Dosage: UNK
  8. ENBREL [Suspect]
     Indication: PSORIASIS
     Dosage: 50 MG, 2 TIMES/WK
     Dates: start: 20101216
  9. PLAQUENIL [Concomitant]
     Dosage: UNK

REACTIONS (3)
  - HYPOAESTHESIA ORAL [None]
  - INJECTION SITE REACTION [None]
  - PARAESTHESIA [None]
